FAERS Safety Report 7743211-X (Version None)
Quarter: 2011Q3

REPORT INFORMATION
  Report Type: 
  Country: None (occurrence: None)
  Receive Date: 20110912
  Receipt Date: 20110830
  Transmission Date: 20111222
  Serious: Yes (Other)
  Sender: FDA-Public Use
  Company Number: US-ELI_LILLY_AND_COMPANY-US201108001009

PATIENT
  Sex: Female
  Weight: 49.887 kg

DRUGS (19)
  1. OMEPRAZOLE [Concomitant]
  2. VOLTAREN                                /SCH/ [Concomitant]
  3. INDOMETHACIN [Concomitant]
  4. BOTOX [Concomitant]
  5. AMLODIPINE BESYLATE [Concomitant]
  6. ZONISAMIDE [Concomitant]
  7. CLONAZEPAM [Concomitant]
  8. SINGULAIR [Concomitant]
  9. ONDANSETRON [Concomitant]
  10. BACLOFEN [Concomitant]
  11. ROPINIROLE HYDROCHLORIDE [Concomitant]
  12. FEXOFENADINE HCL [Concomitant]
  13. MAGNESIUM [Concomitant]
  14. SYNTHROID [Concomitant]
  15. KETOPROFEN [Concomitant]
  16. VITAMIN B-12 [Concomitant]
  17. PROMETHAZINE [Concomitant]
  18. VITAMIN D [Concomitant]
  19. CYMBALTA [Suspect]
     Indication: DEPRESSION
     Dosage: 60 MG, BID
     Route: 048

REACTIONS (4)
  - CERVICAL CORD COMPRESSION [None]
  - NAUSEA [None]
  - INSOMNIA [None]
  - HEADACHE [None]
